FAERS Safety Report 13324258 (Version 2)
Quarter: 2017Q3

REPORT INFORMATION
  Report Type: Spontaneous
  Country: US (occurrence: US)
  Receive Date: 20170310
  Receipt Date: 20170831
  Transmission Date: 20171127
  Serious: Yes (Hospitalization)
  Sender: FDA-Public Use
  Company Number: US-FERRINGPH-2017FE00974

PATIENT

DRUGS (6)
  1. PYRIDOXINE [Concomitant]
     Active Substance: PYRIDOXINE
  2. PROPAFENONE. [Concomitant]
     Active Substance: PROPAFENONE
  3. WARFARIN [Concomitant]
     Active Substance: WARFARIN
  4. SALT [Concomitant]
     Active Substance: SODIUM CHLORIDE
  5. ATENOLOL. [Concomitant]
     Active Substance: ATENOLOL
  6. DDAVP [Suspect]
     Active Substance: DESMOPRESSIN ACETATE
     Indication: POLYURIA
     Dosage: 100 ?G, 3 TIMES DAILY
     Route: 048

REACTIONS (4)
  - Atrial fibrillation [Unknown]
  - Hyponatraemia [Recovered/Resolved]
  - Self-medication [Unknown]
  - Inappropriate antidiuretic hormone secretion [Recovered/Resolved]
